FAERS Safety Report 9483495 (Version 2)
Quarter: 2013Q3

REPORT INFORMATION
  Report Type: Spontaneous
  Country: CA (occurrence: CA)
  Receive Date: 20130828
  Receipt Date: 20130828
  Transmission Date: 20140515
  Serious: Yes (Other)
  Sender: FDA-Public Use
  Company Number: CA-AMGEN-KDL270401

PATIENT
  Age: 40 Year
  Sex: Female
  Weight: 75.8 kg

DRUGS (3)
  1. ENBREL [Suspect]
     Indication: PSORIASIS
     Dosage: 50 MG, 2 TIMES/WK
     Route: 058
     Dates: start: 20070516, end: 20080304
  2. THYROXINE [Concomitant]
  3. SALBUTAMOL [Concomitant]

REACTIONS (4)
  - Colon cancer [Unknown]
  - Mean cell volume abnormal [Unknown]
  - Arthralgia [Not Recovered/Not Resolved]
  - Pain in extremity [Unknown]
